FAERS Safety Report 4997902-4 (Version None)
Quarter: 2006Q2

REPORT INFORMATION
  Report Type: 
  Country: None (occurrence: None)
  Receive Date: 20060508
  Receipt Date: 20060420
  Transmission Date: 20061013
  Serious: Yes (Other)
  Sender: FDA-Public Use
  Company Number: 2006031945

PATIENT
  Age: 75 Year
  Sex: Female

DRUGS (1)
  1. CELEBREX [Suspect]
     Indication: ILL-DEFINED DISORDER

REACTIONS (7)
  - BASAL CELL CARCINOMA [None]
  - BREAST CANCER FEMALE [None]
  - DRUG INEFFECTIVE [None]
  - HEARING IMPAIRED [None]
  - PHAEOCHROMOCYTOMA [None]
  - SPINAL DISORDER [None]
  - WEIGHT DECREASED [None]
